FAERS Safety Report 5114880-8 (Version None)
Quarter: 2006Q3

REPORT INFORMATION
  Report Type: 
  Country: None (occurrence: None)
  Receive Date: 20060926
  Receipt Date: 20060918
  Transmission Date: 20061208
  Serious: Yes (Hospitalization)
  Sender: FDA-Public Use
  Company Number: 2006CG01518

PATIENT
  Age: 96 Year
  Sex: Female
  Weight: 71 kg

DRUGS (9)
  1. ATACAND [Suspect]
     Route: 048
     Dates: start: 20060603, end: 20060812
  2. CARDENSIEL [Suspect]
     Route: 048
     Dates: start: 20060603
  3. LASIX [Suspect]
     Route: 048
     Dates: start: 20060603
  4. ATARAX [Concomitant]
     Dates: end: 20060713
  5. VASTAREL [Concomitant]
  6. MAXEPA [Concomitant]
  7. BETASELEN [Concomitant]
  8. KALEORID [Concomitant]
     Dates: start: 20060603
  9. CLARYTINE [Concomitant]
     Indication: PRURITUS
     Dates: start: 20060624

REACTIONS (1)
  - PEMPHIGOID [None]
